FAERS Safety Report 4321008-0 (Version None)
Quarter: 2004Q1

REPORT INFORMATION
  Report Type: 
  Country: None (occurrence: None)
  Receive Date: 20040315
  Receipt Date: 20031010
  Transmission Date: 20041129
  Serious: Yes (Disabling, Other)
  Sender: FDA-Public Use
  Company Number: PHEH2003US08800

PATIENT
  Age: 53 Year
  Sex: Female
  Weight: 81.6 kg

DRUGS (7)
  1. TRILEPTAL [Suspect]
     Indication: BIPOLAR II DISORDER
     Dosage: 300 MG, TID, ORAL
     Route: 048
     Dates: start: 20030902, end: 20030925
  2. KLONOPIN [Concomitant]
  3. HYZAAR [Concomitant]
  4. NORVASC [Concomitant]
  5. HYOSCYAMINE (HYOSCYAMINE) [Concomitant]
  6. FEMHRT [Concomitant]
  7. NORITATE (METRONIDAZOLE) [Concomitant]

REACTIONS (4)
  - CONFUSIONAL STATE [None]
  - CONTUSION [None]
  - MANIA [None]
  - MEMORY IMPAIRMENT [None]
